FAERS Safety Report 11465592 (Version 1)
Quarter: 2015Q3

REPORT INFORMATION
  Report Type: Spontaneous
  Country: DE (occurrence: DE)
  Receive Date: 20150907
  Receipt Date: 20150907
  Transmission Date: 20151125
  Serious: Yes (Other)
  Sender: FDA-Public Use
  Company Number: DE-PFIZER INC-2015296206

PATIENT
  Age: 37 Year
  Sex: Female
  Weight: 118 kg

DRUGS (6)
  1. RHINOSPRAY PLUS [Suspect]
     Active Substance: TRAMAZOLINE HYDROCHLORIDE
     Indication: NASAL CONGESTION
     Dosage: 5 MG/D DEPENDENT ON NOSE SPRAY
     Route: 045
  2. MOMETAHEXAL [Concomitant]
     Active Substance: MOMETASONE
     Indication: NASAL CONGESTION
     Dosage: 100 ?G, DAILY
     Route: 045
  3. SYMBICORT [Concomitant]
     Active Substance: BUDESONIDE\FORMOTEROL FUMARATE DIHYDRATE
     Indication: ASTHMA
     Dosage: 160 MCG/D/ 9MCG/D PER DAY
     Route: 055
  4. ADVANTAN [Concomitant]
     Active Substance: CORTICOSTEROID NOS
     Indication: POLYMORPHIC ERUPTION OF PREGNANCY
     Dosage: SEVERAL TIMES THE DAY
     Route: 003
     Dates: start: 20141219
  5. SULFASALAZINE. [Suspect]
     Active Substance: SULFASALAZINE
     Indication: RHEUMATOID ARTHRITIS
     Dosage: 1000 MG, 2X/DAY
     Route: 048
  6. FOLSAEURE RATIOPHARM [Concomitant]
     Indication: PROPHYLAXIS OF NEURAL TUBE DEFECT
     Dosage: 5 MG, DAILY
     Route: 048

REACTIONS (2)
  - Polymorphic eruption of pregnancy [Unknown]
  - Gestational diabetes [Unknown]
